FAERS Safety Report 9639763 (Version 1)
Quarter: 2013Q4

REPORT INFORMATION
  Report Type: Spontaneous
  Country: US (occurrence: None)
  Receive Date: 20131021
  Receipt Date: 20131021
  Transmission Date: 20140711
  Serious: Yes (Life-Threatening, Hospitalization)
  Sender: FDA-Public Use
  Company Number: None

PATIENT
  Age: 2 Year
  Sex: Female
  Weight: 10.89 kg

DRUGS (1)
  1. FLOVENT HFA [Suspect]
     Indication: ASTHMA
     Dosage: 2 AND 1/2 YEARS, 2 PUFF, TWICE DAILY, INHALATION
     Route: 055

REACTIONS (3)
  - Blood glucose decreased [None]
  - Blood cortisol decreased [None]
  - Adrenocortical insufficiency acute [None]
